FAERS Safety Report 23419539 (Version 2)
Quarter: 2024Q2

REPORT INFORMATION
  Report Type: Spontaneous
  Country: DE (occurrence: DE)
  Receive Date: 20240118
  Receipt Date: 20240627
  Transmission Date: 20240715
  Serious: Yes (Other)
  Sender: FDA-Public Use
  Company Number: DE-002147023-NVSC2022DE100266

PATIENT
  Sex: Female
  Weight: 46 kg

DRUGS (13)
  1. LEVOTHYROXINE [Suspect]
     Active Substance: LEVOTHYROXINE\LEVOTHYROXINE SODIUM
     Indication: Autoimmune thyroiditis
     Dosage: UNK
     Route: 065
  2. LEVOTHYROXINE [Suspect]
     Active Substance: LEVOTHYROXINE\LEVOTHYROXINE SODIUM
     Indication: Autoimmune thyroiditis
  3. EXJADE [Suspect]
     Active Substance: DEFERASIROX
     Indication: Red blood cell transfusion
     Dosage: 630 MG, QD
     Route: 065
     Dates: end: 202302
  4. EXJADE [Suspect]
     Active Substance: DEFERASIROX
     Indication: Myelodysplastic syndrome
     Dosage: 630 MG, QD
     Route: 065
     Dates: start: 20220526, end: 20230210
  5. EXJADE [Suspect]
     Active Substance: DEFERASIROX
     Dosage: 360 MG, QD (AT NOON)
     Route: 065
     Dates: start: 20230505, end: 20230528
  6. EXJADE [Suspect]
     Active Substance: DEFERASIROX
     Dosage: 360 MG, QD  (IN THE EVENING)
     Route: 065
     Dates: start: 20230616, end: 2023
  7. EXJADE [Suspect]
     Active Substance: DEFERASIROX
     Dosage: 630 MG, QD
     Route: 065
     Dates: start: 20220108, end: 20220425
  8. EXJADE [Suspect]
     Active Substance: DEFERASIROX
     Dosage: 360 MG, QD (IN THE EVENING)
     Route: 065
     Dates: start: 2023
  9. EXJADE [Suspect]
     Active Substance: DEFERASIROX
     Dosage: 630 MG, QD
     Route: 065
     Dates: start: 20230227, end: 20230306
  10. ASPIRIN [Concomitant]
     Active Substance: ASPIRIN
     Indication: Haemorrhage
     Dosage: UNK
     Route: 065
  11. CALCIUM [Concomitant]
     Active Substance: CALCIUM
     Indication: Product used for unknown indication
     Route: 065
  12. CALCIUM [Concomitant]
     Active Substance: CALCIUM
  13. ASPIRIN [Concomitant]
     Active Substance: ASPIRIN
     Indication: Haemorrhage
     Dosage: UNK

REACTIONS (29)
  - Haemoglobin decreased [Recovering/Resolving]
  - Renal impairment [Unknown]
  - Mobility decreased [Not Recovered/Not Resolved]
  - Abdominal pain upper [Not Recovered/Not Resolved]
  - Dysgeusia [Recovered/Resolved]
  - Dysgeusia [Recovered/Resolved]
  - Serum ferritin increased [Not Recovered/Not Resolved]
  - Accident [Unknown]
  - Folate deficiency [Unknown]
  - Vomiting [Unknown]
  - Diarrhoea [Unknown]
  - Back pain [Unknown]
  - Malaise [Unknown]
  - Panic disorder [Unknown]
  - Gastrointestinal disorder [Unknown]
  - Mental disorder [Not Recovered/Not Resolved]
  - Chronic gastritis [Unknown]
  - Renal pain [Recovered/Resolved]
  - Osteoarthritis [Unknown]
  - Osteoporosis [Unknown]
  - Bone marrow oedema [Unknown]
  - Night sweats [Not Recovered/Not Resolved]
  - Dyspepsia [Unknown]
  - Drug ineffective [Unknown]
  - Weight decreased [Not Recovered/Not Resolved]
  - Arthropathy [Not Recovered/Not Resolved]
  - Blood glucose increased [Unknown]
  - Hiatus hernia [Unknown]
  - Taste disorder [Unknown]

NARRATIVE: CASE EVENT DATE: 20220101
